FAERS Safety Report 6108106-6 (Version None)
Quarter: 2009Q1

REPORT INFORMATION
  Report Type: 
  Country: None (occurrence: None)
  Receive Date: 20090304
  Receipt Date: 20080321
  Transmission Date: 20090719
  Serious: Yes (Other)
  Sender: FDA-Public Use
  Company Number: US-000487

PATIENT
  Age: 62 Year
  Sex: Female

DRUGS (5)
  1. ISOVUE-128 [Suspect]
     Indication: ARTERIOGRAM CORONARY
     Dosage: 40ML QD INTRA-ARTERIAL
     Route: 013
     Dates: start: 20080321, end: 20080321
  2. ISOVUE-128 [Suspect]
     Indication: CHEST PAIN
     Dosage: 40ML QD INTRA-ARTERIAL
     Route: 013
     Dates: start: 20080321, end: 20080321
  3. ASPIRIN [Concomitant]
  4. PLAVIX [Concomitant]
  5. ANGIOMAX [Concomitant]

REACTIONS (1)
  - ARTERIOSPASM CORONARY [None]
